FAERS Safety Report 7073466-9 (Version None)
Quarter: 2010Q4

REPORT INFORMATION
  Report Type: 
  Country: None (occurrence: None)
  Receive Date: 20101029
  Receipt Date: 20100820
  Transmission Date: 20110411
  Serious: No
  Sender: FDA-Public Use
  Company Number: A0866560A

PATIENT
  Age: 77 Year
  Sex: Male

DRUGS (11)
  1. ADVAIR DISKUS 100/50 [Suspect]
     Indication: ASTHMA
     Dosage: 1PUFF TWICE PER DAY
     Route: 055
     Dates: start: 20100101
  2. LANOXIN [Concomitant]
  3. OMEPRAZOLE [Concomitant]
  4. HYDROCHLOROTHIAZIDE [Concomitant]
  5. GLYBURIDE AND METFORMIN HYDROCHLORIDE [Concomitant]
  6. VENTOLIN HFA [Concomitant]
  7. VERAPAMIL [Concomitant]
  8. LISINOPRIL [Concomitant]
  9. ZOCOR [Concomitant]
  10. SIMVASTATIN [Concomitant]
  11. WARFARIN SODIUM [Concomitant]

REACTIONS (3)
  - DRUG INEFFECTIVE [None]
  - DYSPNOEA [None]
  - PRODUCT QUALITY ISSUE [None]
